FAERS Safety Report 9980580 (Version 1)
Quarter: 2014Q1

REPORT INFORMATION
  Report Type: Spontaneous
  Country: US (occurrence: US)
  Receive Date: 20140307
  Receipt Date: 20140307
  Transmission Date: 20141002
  Serious: No
  Sender: FDA-Public Use
  Company Number: US-BIOGENIDEC-2014BI019007

PATIENT
  Age: 41 Year
  Sex: Female

DRUGS (2)
  1. AVONEX [Suspect]
     Indication: MULTIPLE SCLEROSIS
     Route: 030
     Dates: start: 20130111, end: 2013
  2. AVONEX [Suspect]
     Indication: MULTIPLE SCLEROSIS
     Route: 030
     Dates: start: 201309

REACTIONS (9)
  - Influenza [Recovered/Resolved]
  - Moaning [Recovered/Resolved]
  - Sensory disturbance [Unknown]
  - Hypoaesthesia [Unknown]
  - Uhthoff^s phenomenon [Unknown]
  - Myalgia [Unknown]
  - Multiple sclerosis relapse [Unknown]
  - Pain [Recovered/Resolved]
  - Feeling abnormal [Recovered/Resolved]
